FAERS Safety Report 23092118 (Version 1)
Quarter: 2023Q4

REPORT INFORMATION
  Report Type: Spontaneous
  Country: US (occurrence: US)
  Receive Date: 20231021
  Receipt Date: 20231021
  Transmission Date: 20240109
  Serious: Yes (Death, Other)
  Sender: FDA-Public Use
  Company Number: US-AMGEN-USASP2023184896

PATIENT
  Age: 9 Month
  Sex: Female

DRUGS (2)
  1. BLINATUMOMAB [Suspect]
     Active Substance: BLINATUMOMAB
     Indication: B-cell type acute leukaemia
     Dosage: UNK
     Route: 065
  2. GEMTUZUMAB OZOGAMICIN [Concomitant]
     Active Substance: GEMTUZUMAB OZOGAMICIN
     Indication: B-cell type acute leukaemia
     Dosage: UNK

REACTIONS (9)
  - Multiple organ dysfunction syndrome [Fatal]
  - Venoocclusive liver disease [Unknown]
  - Thrombotic microangiopathy [Unknown]
  - Acute respiratory distress syndrome [Unknown]
  - Lineage switch leukaemia [Unknown]
  - Alpha haemolytic streptococcal infection [Unknown]
  - Neutropenia [Unknown]
  - Pneumonia [Unknown]
  - Therapy non-responder [Unknown]
